FAERS Safety Report 8782413 (Version 1)
Quarter: 2012Q4

REPORT INFORMATION
  Report Type: 
  Country: US (occurrence: US)
  Receive Date: 20120913
  Receipt Date: 20120913
  Transmission Date: 20130627
  Serious: Yes (Other)
  Sender: FDA-Public Use
  Company Number: CHPA2012US019457

PATIENT
  Age: 44 Year
  Sex: Male

DRUGS (4)
  1. EXCEDRIN UNKNOWN [Suspect]
     Dosage: Unk,  Unk
     Route: 048
  2. TYLENOL [Concomitant]
     Dosage: Unk, Unk
  3. BAYER ASPIRIN [Concomitant]
     Dosage: Unk, Unk
  4. DRUG THERAPY NOS [Concomitant]
     Dosage: Unk, Unk

REACTIONS (3)
  - Intervertebral disc protrusion [Not Recovered/Not Resolved]
  - Road traffic accident [Recovered/Resolved]
  - Intervertebral disc protrusion [None]
